FAERS Safety Report 17268632 (Version 2)
Quarter: 2020Q1

REPORT INFORMATION
  Report Type: Spontaneous
  Country: IT (occurrence: IT)
  Receive Date: 20200114
  Receipt Date: 20200120
  Transmission Date: 20200409
  Serious: Yes (Death, Other)
  Sender: FDA-Public Use
  Company Number: IT-ABBVIE-20K-083-3230477-00

PATIENT
  Age: 40 Year
  Sex: Male

DRUGS (30)
  1. HALOPERIDOL. [Interacting]
     Active Substance: HALOPERIDOL
     Dosage: AT 8:00 PM
     Route: 048
  2. HALOPERIDOL. [Interacting]
     Active Substance: HALOPERIDOL
     Dosage: AT 8:00 AM AND AT 8:00 PM
     Route: 048
  3. PROMAZINE [Interacting]
     Active Substance: PROMAZINE
     Dosage: AT NIGHT
     Route: 048
  4. CLOTHIAPINE [Concomitant]
     Active Substance: CLOTHIAPINE
     Dosage: AT 8:00 PM
     Route: 030
  5. VALPROATE [Suspect]
     Active Substance: VALPROIC ACID
     Dosage: GIVEN AT 8 AM, 1 PM AND 8 PM
     Route: 048
  6. VALPROATE [Suspect]
     Active Substance: VALPROIC ACID
     Dosage: GIVEN AT 8 AM, 1 PM AND 8 PM
     Route: 048
  7. CLOZAPINE. [Interacting]
     Active Substance: CLOZAPINE
     Dosage: AT 1:00 PM
     Route: 048
  8. CLOZAPINE. [Interacting]
     Active Substance: CLOZAPINE
     Indication: MANIA
     Dosage: AT 8:00 PM
     Route: 065
  9. CLOZAPINE. [Interacting]
     Active Substance: CLOZAPINE
     Dosage: AT 8:00 AM
     Route: 048
  10. PROMAZINE [Interacting]
     Active Substance: PROMAZINE
     Dosage: AT NIGHT
     Route: 048
  11. MIDAZOLAM HYDROCHLORIDE. [Concomitant]
     Active Substance: MIDAZOLAM HYDROCHLORIDE
     Indication: MANIA
     Dosage: AT 1:00 PM?AT NIGHT MIDAZOLAM 5 MG
     Route: 042
  12. DELORAZEPAM [Concomitant]
     Active Substance: DELORAZEPAM
     Dosage: AT NIGHT
     Route: 030
  13. DELORAZEPAM [Concomitant]
     Active Substance: DELORAZEPAM
     Dosage: AT NIGHT
     Route: 048
  14. CLOTHIAPINE [Concomitant]
     Active Substance: CLOTHIAPINE
     Dosage: AT 8:00 AM. 1:00 PM AND AT 8:00 PM
     Route: 030
  15. VALPROATE [Suspect]
     Active Substance: VALPROIC ACID
     Dosage: GIVEN AT 8 AM, 1 PM AND 8 PM
     Route: 048
  16. CLOZAPINE. [Interacting]
     Active Substance: CLOZAPINE
     Dosage: AT 8:00 AM, 1:00 PM AND AT 8:00 PM
     Route: 048
  17. DELORAZEPAM [Concomitant]
     Active Substance: DELORAZEPAM
     Dosage: AT NIGHT
     Route: 048
  18. VALPROATE [Suspect]
     Active Substance: VALPROIC ACID
     Indication: MANIA
     Dosage: AT NIGHT
     Route: 048
  19. PROMAZINE [Interacting]
     Active Substance: PROMAZINE
     Indication: MANIA
     Dosage: AT NIGHT
     Route: 065
  20. FLUVOXAMINE [Concomitant]
     Active Substance: FLUVOXAMINE
     Indication: MANIA
     Route: 048
  21. DELORAZEPAM [Concomitant]
     Active Substance: DELORAZEPAM
     Indication: MANIA
     Dosage: AT 8:00 PM
     Route: 042
  22. CHLORPROMAZINE. [Concomitant]
     Active Substance: CHLORPROMAZINE
     Indication: MANIA
     Dosage: AT 8:00 PM
     Route: 042
  23. CHLORPROMAZINE. [Concomitant]
     Active Substance: CHLORPROMAZINE
     Dosage: AT NIGHT
     Route: 030
  24. VALPROATE [Suspect]
     Active Substance: VALPROIC ACID
     Dosage: AT 8 PM
     Route: 048
  25. CLOZAPINE. [Interacting]
     Active Substance: CLOZAPINE
     Dosage: AT 1:00 PM, AT 8:00 PM
     Route: 048
  26. CLOTHIAPINE [Concomitant]
     Active Substance: CLOTHIAPINE
     Indication: MANIA
     Dosage: AT NIGHT
     Route: 030
  27. CLOZAPINE. [Interacting]
     Active Substance: CLOZAPINE
     Dosage: AT 8: 00 AM?AT 1:00 PM AND AT 8:00 PM
     Route: 048
  28. DELORAZEPAM [Concomitant]
     Active Substance: DELORAZEPAM
     Dosage: AT NIGHT
     Route: 048
  29. HALOPERIDOL. [Interacting]
     Active Substance: HALOPERIDOL
     Indication: MANIA
     Dosage: AT 1:00 PM
     Route: 042
  30. CHLORPHENIRAMINE. [Concomitant]
     Active Substance: CHLORPHENIRAMINE
     Indication: MANIA
     Dosage: AT 8:00 PM
     Route: 042

REACTIONS (3)
  - Drug interaction [Unknown]
  - Drug level increased [Unknown]
  - Cardiac arrest [Fatal]
